FAERS Safety Report 11073224 (Version 1)
Quarter: 2015Q2

REPORT INFORMATION
  Report Type: Spontaneous
  Country: NL (occurrence: NL)
  Receive Date: 20150428
  Receipt Date: 20150428
  Transmission Date: 20150821
  Serious: Yes (Other)
  Sender: FDA-Public Use
  Company Number: NL-009507513-1504NLD021096

PATIENT
  Age: 54 Year
  Sex: Female
  Weight: 83 kg

DRUGS (9)
  1. DOXORUBICIN HYDROCHLORIDE. [Suspect]
     Active Substance: DOXORUBICIN HYDROCHLORIDE
     Indication: BREAST CANCER
     Dosage: 1 TIME EVERY 3 WEEKS IN COMBINATION WITH DOCETAXEL / CYCLOFOSFAMIDE
     Route: 042
     Dates: start: 20150116
  2. DOCETAXEL. [Suspect]
     Active Substance: DOCETAXEL
     Indication: BREAST CANCER
     Dosage: EXTRA INFO 1 TIME EVERY 3 WEEKS (SCHEDULE IN COMBINATION WITH DOCETAXEL / CYCLOFOSFAMIDE)
     Route: 042
     Dates: start: 20150116
  3. DEXAMETHASONE. [Suspect]
     Active Substance: DEXAMETHASONE
     Indication: PROPHYLAXIS
     Dosage: 3 DAYS 2 TIMES A DAY / 1 TIME EVERY 3 WEEKS
     Route: 048
     Dates: start: 20150115
  4. CIPROFLOXACIN. [Suspect]
     Active Substance: CIPROFLOXACIN
     Indication: PROPHYLAXIS
     Dosage: DAY 5 ?DAY 14 2 TIMES A DAY 1 TABLET (INTERVAL SCHEDULE 3 WEEKS)
     Route: 048
     Dates: start: 20150120
  5. EMEND [Suspect]
     Active Substance: APREPITANT
     Indication: PROPHYLAXIS
     Dosage: DAY 1,2,3, 1 TIME A DAY ( REPEAT 1 TIME EVERY 3 WEEKS) (CAPSULE 1X125MG/2X80MG )
     Route: 048
     Dates: start: 20150116
  6. NEULASTA [Suspect]
     Active Substance: PEGFILGRASTIM
     Indication: PROPHYLAXIS
     Dosage: 1 TIME EVERY 3 WEEKS
     Route: 058
     Dates: start: 20150117
  7. METOCLOPRAMIDE HYDROCHLORIDE. [Suspect]
     Active Substance: METOCLOPRAMIDE HYDROCHLORIDE
     Indication: PROPHYLAXIS
     Dosage: IF NEEDED MAXIMAL 3 TIMES A DAY 1 TABLET
     Route: 048
     Dates: start: 20150116
  8. METOCLOPRAMIDE. [Suspect]
     Active Substance: METOCLOPRAMIDE
     Indication: PROPHYLAXIS
     Dosage: IF NEEDED MAXIMAL 3 TIMES A DAY 1 SUPPOSITORY
     Route: 054
     Dates: start: 20150116
  9. CYCLOPHOSPHAMIDE. [Suspect]
     Active Substance: CYCLOPHOSPHAMIDE
     Indication: BREAST CANCER
     Dosage: 1 TIME EVERY 3 WEEKS IN COMBINATION WITH DOCETAXEL / DOXORUBICIN
     Route: 042
     Dates: start: 20150116

REACTIONS (1)
  - Hearing impaired [Not Recovered/Not Resolved]

NARRATIVE: CASE EVENT DATE: 201502
